FAERS Safety Report 5794001-9 (Version None)
Quarter: 2008Q2

REPORT INFORMATION
  Report Type: 
  Country: None (occurrence: None)
  Receive Date: 20080627
  Receipt Date: 20080617
  Transmission Date: 20081010
  Serious: Yes (Death, Hospitalization)
  Sender: FDA-Public Use
  Company Number: US-PFIZER INC-2008046326

PATIENT
  Sex: Male
  Weight: 36.7 kg

DRUGS (2)
  1. SU-011,248 [Suspect]
     Indication: HEAD AND NECK CANCER
     Route: 048
     Dates: start: 20080428, end: 20080523
  2. DECADRON [Concomitant]

REACTIONS (5)
  - MENTAL STATUS CHANGES [None]
  - NECK PAIN [None]
  - NEUTROPENIA [None]
  - PNEUMONIA [None]
  - STAPHYLOCOCCAL SEPSIS [None]
